FAERS Safety Report 9735808 (Version 1)
Quarter: 2013Q4

REPORT INFORMATION
  Report Type: Spontaneous
  Country: IT (occurrence: IT)
  Receive Date: 20131206
  Receipt Date: 20131206
  Transmission Date: 20140711
  Serious: Yes (Hospitalization)
  Sender: FDA-Public Use
  Company Number: IT-ELI_LILLY_AND_COMPANY-IT201311008299

PATIENT
  Age: 64 Year
  Sex: Female

DRUGS (8)
  1. HUMALOG LISPRO [Suspect]
     Indication: DIABETES MELLITUS
     Dosage: 6 IU, UNKNOWN
     Route: 058
  2. PANTOPRAZOLE [Concomitant]
  3. FUROSEMIDE [Concomitant]
  4. RAMIPRIL [Concomitant]
  5. GABAPENTIN [Concomitant]
  6. LORAZEPAM [Concomitant]
  7. OXYCONTIN [Concomitant]
  8. DELTACORTENE [Concomitant]

REACTIONS (2)
  - Hypoglycaemia [Recovering/Resolving]
  - Incorrect dose administered [Recovering/Resolving]
